FAERS Safety Report 10037784 (Version 2)
Quarter: 2014Q1

REPORT INFORMATION
  Report Type: Spontaneous
  Country: US (occurrence: None)
  Receive Date: 20140324
  Receipt Date: 20140328
  Transmission Date: 20141002
  Serious: Yes (Hospitalization, Other)
  Sender: FDA-Public Use
  Company Number: 2014AP002021

PATIENT
  Age: 61 Year
  Sex: Male

DRUGS (13)
  1. AZITHROMYCIN [Suspect]
  2. PANTOPRAZOLE SODIUM [Suspect]
  3. ATRIPLA [Suspect]
  4. COTRIMOXAZOLE [Suspect]
     Indication: ANTIFUNGAL PROPHYLAXIS
  5. METOPROLOL [Concomitant]
  6. FLUTICASONE PROPIONATE [Concomitant]
  7. BREVA [Concomitant]
  8. LEVOTHYROXINE SODIUM [Concomitant]
  9. SIMVASTATIN [Concomitant]
  10. CLOPIDOGREL [Concomitant]
  11. CALCIUM CARBONATE/VITRAMIN D [Concomitant]
  12. HYDROXZYNE [Concomitant]
  13. PAROXETINE [Concomitant]

REACTIONS (17)
  - Renal tubular disorder [None]
  - Tubulointerstitial nephritis [None]
  - Renal injury [None]
  - Nephropathy toxic [None]
  - Rectal haemorrhage [None]
  - Staphylococcal bacteraemia [None]
  - Renal failure [None]
  - Anaemia [None]
  - Blood sodium decreased [None]
  - Blood chloride decreased [None]
  - Carbon dioxide decreased [None]
  - Blood albumin decreased [None]
  - Globulins increased [None]
  - White blood cell count decreased [None]
  - Glucose urine present [None]
  - Albumin urine present [None]
  - Drug hypersensitivity [None]
